FAERS Safety Report 4441222-3 (Version None)
Quarter: 2004Q3

REPORT INFORMATION
  Report Type: 
  Country: None (occurrence: None)
  Receive Date: 20040728
  Receipt Date: 20040331
  Transmission Date: 20050211
  Serious: No
  Sender: FDA-Public Use
  Company Number: USA040463750

PATIENT
  Age: 6 Year
  Sex: Female
  Weight: 21 kg

DRUGS (2)
  1. STRATTERA [Suspect]
     Dosage: 35 MG DAY
     Dates: start: 20030801
  2. ZOLOFT [Concomitant]

REACTIONS (2)
  - DRUG EFFECT DECREASED [None]
  - PRESCRIBED OVERDOSE [None]
